FAERS Safety Report 9893726 (Version 2)
Quarter: 2014Q2

REPORT INFORMATION
  Report Type: Spontaneous
  Country: US (occurrence: US)
  Receive Date: 20140213
  Receipt Date: 20140402
  Transmission Date: 20141212
  Serious: Yes (Life-Threatening, Congenital Anomaly, Other)
  Sender: FDA-Public Use
  Company Number: US-PFIZER INC-2014039975

PATIENT
  Sex: Male

DRUGS (3)
  1. ZOLOFT [Suspect]
     Dosage: UNK
     Route: 064
     Dates: start: 200801, end: 200802
  2. SERTRALINE HCL [Suspect]
     Dosage: UNK
     Route: 064
     Dates: start: 200801, end: 200802
  3. PRENATAL VITAMINS [Concomitant]
     Dosage: UNK
     Route: 064

REACTIONS (12)
  - Maternal exposure during pregnancy [Unknown]
  - Congenital anomaly [Unknown]
  - Truncus arteriosus persistent [Unknown]
  - Interruption of aortic arch [Unknown]
  - Congenital coronary artery malformation [Unknown]
  - Ventricular septal defect [Unknown]
  - Coarctation of the aorta [Unknown]
  - Carotid artery stenosis [Unknown]
  - Pulmonary artery stenosis [Unknown]
  - Congenital musculoskeletal anomaly [Unknown]
  - Convulsion [Unknown]
  - Cerebrovascular accident [Unknown]
